FAERS Safety Report 23991597 (Version 2)
Quarter: 2025Q2

REPORT INFORMATION
  Report Type: Spontaneous
  Country: JP (occurrence: JP)
  Receive Date: 20240619
  Receipt Date: 20250606
  Transmission Date: 20250716
  Serious: Yes (Hospitalization, Other)
  Sender: EISAI
  Company Number: JP-Eisai-202403092_LEN-RCC_P_1

PATIENT
  Age: 77 Year
  Sex: Female

DRUGS (2)
  1. LENVIMA [Suspect]
     Active Substance: LENVATINIB
     Indication: Renal cell carcinoma
  2. KEYTRUDA [Suspect]
     Active Substance: PEMBROLIZUMAB
     Indication: Renal cell carcinoma
     Route: 041

REACTIONS (4)
  - Type 1 diabetes mellitus [Unknown]
  - Adrenal insufficiency [Unknown]
  - Blood corticotrophin abnormal [Unknown]
  - Primary hypothyroidism [Unknown]
